FAERS Safety Report 22820953 (Version 3)
Quarter: 2025Q2

REPORT INFORMATION
  Report Type: Spontaneous
  Country: US (occurrence: US)
  Receive Date: 20230814
  Receipt Date: 20250425
  Transmission Date: 20250716
  Serious: No
  Sender: PFIZER
  Company Number: US-PFIZER INC-PV202300122445

PATIENT
  Age: 91 Year
  Sex: Male

DRUGS (1)
  1. VYNDAMAX [Interacting]
     Active Substance: TAFAMIDIS
     Indication: Amyloidosis

REACTIONS (1)
  - Drug interaction [Unknown]
